FAERS Safety Report 15953345 (Version 1)
Quarter: 2019Q1

REPORT INFORMATION
  Report Type: Spontaneous
  Country: NL (occurrence: NL)
  Receive Date: 20190212
  Receipt Date: 20190212
  Transmission Date: 20190417
  Serious: Yes (Life-Threatening, Hospitalization, Other)
  Sender: FDA-Public Use
  Company Number: NL-AUROBINDO-AUR-APL-2019-007016

PATIENT

DRUGS (2)
  1. AMOXICILLIN POWDER FOR SOLUTION FOR INJECTION/INFUSION 2000 MG [Suspect]
     Active Substance: AMOXICILLIN
     Indication: ENDOCARDITIS ENTEROCOCCAL
     Dosage: 12000 MILLIGRAM, ONCE A DAY
     Route: 065
     Dates: start: 20181006, end: 20181019
  2. GENTAMICIN SULFATE. [Concomitant]
     Active Substance: GENTAMICIN SULFATE
     Indication: PRODUCT USED FOR UNKNOWN INDICATION
     Dosage: UNK
     Route: 065

REACTIONS (1)
  - Crystal nephropathy [Recovered/Resolved]
